FAERS Safety Report 5345191-3 (Version None)
Quarter: 2007Q2

REPORT INFORMATION
  Report Type: 
  Country: None (occurrence: None)
  Receive Date: 20070605
  Receipt Date: 20070601
  Transmission Date: 20071010
  Serious: Yes (Hospitalization)
  Sender: FDA-Public Use
  Company Number: HQWYE255317MAY07

PATIENT
  Sex: Female

DRUGS (14)
  1. INDERAL [Suspect]
     Indication: PORTAL HYPERTENSION
     Route: 048
     Dates: start: 20070429, end: 20070509
  2. PRIMPERAN INJ [Concomitant]
     Indication: ANOREXIA
     Route: 048
     Dates: start: 20070501
  3. PRANLUKAST [Concomitant]
     Indication: ASTHMA
     Route: 048
  4. GLYCYRRHIZIC ACID [Concomitant]
     Indication: CHRONIC HEPATITIS
     Route: 042
     Dates: start: 20070402
  5. SOLDACTONE [Suspect]
     Indication: HEPATIC CIRRHOSIS
     Route: 042
     Dates: start: 20070428, end: 20070502
  6. SOLDACTONE [Suspect]
     Dosage: DOSE UNSPECIFIED
     Route: 042
     Dates: start: 20070501
  7. HEPAN ED [Concomitant]
     Indication: HEPATIC CIRRHOSIS
     Route: 048
     Dates: start: 20070417
  8. ALDACTONE [Suspect]
     Indication: ASCITES
     Route: 048
     Dates: start: 20070330, end: 20070407
  9. ALDACTONE [Suspect]
     Route: 048
     Dates: start: 20070408, end: 20070418
  10. ALDACTONE [Suspect]
     Dosage: UNSPECIFIED
     Route: 048
     Dates: start: 20070427, end: 20070502
  11. ALDACTONE [Suspect]
     Dosage: DOSE UNSPECIFIED
     Route: 048
     Dates: start: 20070501
  12. GASMOTIN [Concomitant]
     Indication: ANOREXIA
     Route: 048
     Dates: start: 20070417
  13. LASIX [Concomitant]
     Route: 048
     Dates: start: 20070330
  14. LASIX [Concomitant]
     Route: 042
     Dates: start: 20070402, end: 20070419

REACTIONS (1)
  - THROMBOCYTOPENIA [None]
